FAERS Safety Report 17114685 (Version 7)
Quarter: 2022Q3

REPORT INFORMATION
  Report Type: Report from Study
  Country: JP (occurrence: JP)
  Receive Date: 20191205
  Receipt Date: 20220824
  Transmission Date: 20221027
  Serious: Yes (Other)
  Sender: FDA-Public Use
  Company Number: JP-ABBVIE-19K-087-3000069-00

PATIENT
  Age: 76 Year
  Sex: Female
  Weight: 40 kg

DRUGS (6)
  1. CARBIDOPA\LEVODOPA [Suspect]
     Active Substance: CARBIDOPA\LEVODOPA
     Indication: Parkinson^s disease
     Dosage: MD: 6.5 ML, CD: 2.3 ML/HR A 16 HRS, ED: 1 ML/UNIT A 0
     Route: 050
     Dates: start: 20190912, end: 20191003
  2. CARBIDOPA\LEVODOPA [Suspect]
     Active Substance: CARBIDOPA\LEVODOPA
     Dosage: MD: 9.5 ML, CD: 2.3 ML/HR A 16 HRS, ED: 2 ML/UNIT A 0
     Route: 050
     Dates: start: 20191004, end: 20191018
  3. CARBIDOPA\LEVODOPA [Suspect]
     Active Substance: CARBIDOPA\LEVODOPA
     Dosage: MD: 9.8 ML, CD: 2.5ML/HR A 16 HRS, ED: 2 ML/UNIT A 0
     Route: 050
     Dates: start: 20191019
  4. SENNOSIDES [Concomitant]
     Active Substance: SENNOSIDES
     Indication: Product used for unknown indication
     Route: 048
  5. RIVASTIGMINE [Concomitant]
     Active Substance: RIVASTIGMINE
     Indication: Product used for unknown indication
     Route: 062
  6. LANSOPRAZOLE [Concomitant]
     Active Substance: LANSOPRAZOLE
     Indication: Product used for unknown indication
     Route: 048

REACTIONS (15)
  - Gastrointestinal haemorrhage [Unknown]
  - Medical device site swelling [Unknown]
  - Glare [Unknown]
  - Injury [Unknown]
  - Mobility decreased [Unknown]
  - Fall [Unknown]
  - Malaise [Unknown]
  - Fatigue [Unknown]
  - Device dislocation [Unknown]
  - Stoma site discharge [Recovered/Resolved]
  - Stoma site discharge [Recovered/Resolved]
  - Stoma site haemorrhage [Unknown]
  - Stoma site hypergranulation [Unknown]
  - Stoma site erythema [Unknown]
  - Stoma site discharge [Unknown]

NARRATIVE: CASE EVENT DATE: 20190101
